FAERS Safety Report 7700010-2 (Version None)
Quarter: 2011Q3

REPORT INFORMATION
  Report Type: 
  Country: None (occurrence: None)
  Receive Date: 20110815
  Receipt Date: 20110805
  Transmission Date: 20111222
  Serious: Yes (Hospitalization)
  Sender: FDA-Public Use
  Company Number: 2011P1008180

PATIENT
  Age: 65 Year
  Sex: Male

DRUGS (5)
  1. 15 UNSPECIFIED MEDICATIONS [Concomitant]
  2. OPIUM TINCTURE USP (DEODORIZED) 10MG/ML 16 OZ (NO PREF. NAME) [Suspect]
     Indication: DIARRHOEA
     Dosage: 30 DROPS;TID
     Dates: start: 20100914, end: 20110803
  3. OPIUM TINCTURE USP (DEODORIZED) 10MG/ML 16 OZ (NO PREF. NAME) [Suspect]
     Indication: PANCREATITIS CHRONIC
     Dosage: 30 DROPS;TID
     Dates: start: 20100914, end: 20110803
  4. OPIUM TINCTURE USP (DEODORIZED) 10MG/ML 16 OZ (NO PREF. NAME) [Suspect]
     Indication: DIARRHOEA
     Dosage: 30 DROPS;TID
     Dates: start: 20110804
  5. OPIUM TINCTURE USP (DEODORIZED) 10MG/ML 16 OZ (NO PREF. NAME) [Suspect]
     Indication: PANCREATITIS CHRONIC
     Dosage: 30 DROPS;TID
     Dates: start: 20110804

REACTIONS (7)
  - HEADACHE [None]
  - DRUG INEFFECTIVE [None]
  - BLOOD PRESSURE INCREASED [None]
  - DEHYDRATION [None]
  - DIARRHOEA [None]
  - CHEST PAIN [None]
  - TREATMENT NONCOMPLIANCE [None]
